FAERS Safety Report 12281930 (Version 11)
Quarter: 2017Q1

REPORT INFORMATION
  Report Type: Report from Study
  Country: DE (occurrence: DE)
  Receive Date: 20160419
  Receipt Date: 20170321
  Transmission Date: 20170428
  Serious: Yes (Hospitalization, Other)
  Sender: FDA-Public Use
  Company Number: DE-INCYTE CORPORATION-2016IN002164

PATIENT
  Sex: Male
  Weight: 64 kg

DRUGS (28)
  1. INCB018424 [Suspect]
     Active Substance: RUXOLITINIB
     Dosage: 2 DF (15 MG), QD
     Route: 048
     Dates: start: 20131205
  2. INCB018424 [Suspect]
     Active Substance: RUXOLITINIB
     Dosage: 2 DF (5 MG), QD
     Route: 048
     Dates: start: 20150420
  3. NOVALGIN [Concomitant]
     Active Substance: METAMIZOLE SODIUM
     Indication: PAIN
     Dosage: 120 DRP, UNK ALSO AS PRN
     Route: 065
     Dates: start: 20080110, end: 20130418
  4. TILIDINE [Concomitant]
     Active Substance: TILIDINE
     Indication: PAIN
     Dosage: UNK
     Route: 065
     Dates: start: 20120703, end: 20140320
  5. TAMSULOSINE [Concomitant]
     Active Substance: TAMSULOSIN HYDROCHLORIDE
     Indication: BENIGN PROSTATIC HYPERPLASIA
     Dosage: 0.4 MG, UNK
     Route: 065
     Dates: start: 201012
  6. ERYTHROCYTES [Concomitant]
     Active Substance: HUMAN RED BLOOD CELL
     Route: 065
  7. TORASEMIDE [Concomitant]
     Active Substance: TORSEMIDE
     Indication: HYPERTENSION
     Dosage: 30 MG, UNK
     Route: 065
     Dates: start: 20140320, end: 20140515
  8. INCB018424 [Suspect]
     Active Substance: RUXOLITINIB
     Indication: PRIMARY MYELOFIBROSIS
     Dosage: 2 DF (20 MG), QD
     Route: 048
     Dates: start: 20130404
  9. DOXAZOSIN [Concomitant]
     Active Substance: DOXAZOSIN\DOXAZOSIN MESYLATE
     Indication: HYPERTENSION
     Dosage: 4 MG, UNK
     Route: 065
     Dates: start: 20080110, end: 20140320
  10. PANTOPRAZOLE [Concomitant]
     Active Substance: PANTOPRAZOLE SODIUM
     Indication: GASTRITIS PROPHYLAXIS
  11. TORASEMIDE [Concomitant]
     Active Substance: TORSEMIDE
     Dosage: 15 MG, UNK
     Route: 065
     Dates: start: 20140515
  12. LITALIR [Concomitant]
     Active Substance: HYDROXYUREA
     Indication: MYELOPROLIFERATIVE NEOPLASM
     Dosage: UNK
     Route: 065
  13. IBUPROFEN. [Concomitant]
     Active Substance: IBUPROFEN
     Indication: PRODUCT USED FOR UNKNOWN INDICATION
     Dosage: 400 MG, QD
     Route: 065
  14. ERYTHROCYTES [Concomitant]
     Active Substance: HUMAN RED BLOOD CELL
     Route: 065
  15. PANTOPRAZOLE [Concomitant]
     Active Substance: PANTOPRAZOLE SODIUM
     Indication: GASTROINTESTINAL DISORDER
     Dosage: 40 MG, UNK
     Route: 065
     Dates: start: 20140320
  16. PANTOPRAZOLE [Concomitant]
     Active Substance: PANTOPRAZOLE SODIUM
     Indication: PRODUCT USED FOR UNKNOWN INDICATION
  17. ERYTHROCYTES [Concomitant]
     Active Substance: HUMAN RED BLOOD CELL
     Indication: ANAEMIA
     Dosage: UNK
     Route: 065
  18. ATMADISC [Concomitant]
     Active Substance: FLUTICASONE PROPIONATE\SALMETEROL XINAFOATE
     Indication: ASTHMA
     Dosage: 50/250 UG
     Route: 065
  19. RAMIPRIL. [Concomitant]
     Active Substance: RAMIPRIL
     Indication: HYPERTENSION
     Dosage: 10 MG, UNK
     Route: 065
     Dates: start: 20140320
  20. KEPPRA [Concomitant]
     Active Substance: LEVETIRACETAM
     Indication: SUBDURAL HAEMATOMA
     Dosage: 2000 MG, UNK
     Route: 065
     Dates: start: 20140320
  21. INCB018424 [Suspect]
     Active Substance: RUXOLITINIB
     Dosage: 2 DF (5 MG), QD
     Route: 048
     Dates: start: 20140724
  22. INCB018424 [Suspect]
     Active Substance: RUXOLITINIB
     Dosage: 2 DF (5 MG), QD
     Route: 048
     Dates: start: 20141125, end: 20150106
  23. LISINOPRIL. [Concomitant]
     Active Substance: LISINOPRIL
     Indication: HYPERTENSION
     Dosage: 20 MG, UNK
     Route: 065
     Dates: start: 20080110, end: 20140320
  24. AMLODIPINE [Concomitant]
     Active Substance: AMLODIPINE BESYLATE
     Indication: HYPERTENSION
     Dosage: 10 MG, UNK
     Route: 065
     Dates: start: 20080110
  25. ALLOPURINOL. [Concomitant]
     Active Substance: ALLOPURINOL
     Indication: BLOOD URIC ACID INCREASED
     Dosage: 600 MG, UNK
     Route: 065
     Dates: start: 20140320
  26. FERRO SANOL [Concomitant]
     Active Substance: FERROUS GLYCINE SULFATE
     Indication: ANAEMIA
     Dosage: UNK
     Route: 065
  27. INCB018424 [Suspect]
     Active Substance: RUXOLITINIB
     Dosage: 4 DF (5 MG), QD
     Route: 048
     Dates: start: 20141016
  28. INCB018424 [Suspect]
     Active Substance: RUXOLITINIB
     Dosage: 3 DF (5 MG), QD
     Route: 048
     Dates: start: 20150106

REACTIONS (6)
  - General physical health deterioration [Recovered/Resolved]
  - Haematoma [Recovered/Resolved]
  - Fall [Unknown]
  - Erysipelas [Recovered/Resolved]
  - Musculoskeletal pain [Unknown]
  - Traumatic haematoma [Recovered/Resolved]

NARRATIVE: CASE EVENT DATE: 201603
